FAERS Safety Report 9647768 (Version 2)
Quarter: 2013Q4

REPORT INFORMATION
  Report Type: Spontaneous
  Country: JP (occurrence: JP)
  Receive Date: 20131028
  Receipt Date: 20131126
  Transmission Date: 20140711
  Serious: Yes (Hospitalization, Other)
  Sender: FDA-Public Use
  Company Number: JP-JNJFOC-20131012234

PATIENT
  Age: 40 Year
  Sex: Male

DRUGS (1)
  1. DUROTEP MT [Suspect]
     Indication: PAIN
     Route: 062

REACTIONS (4)
  - Pyrexia [Unknown]
  - C-reactive protein increased [Unknown]
  - Drug withdrawal syndrome [Recovered/Resolved]
  - Treatment noncompliance [Unknown]
